FAERS Safety Report 9355417 (Version 1)
Quarter: 2013Q2

REPORT INFORMATION
  Report Type: Spontaneous
  Country: CA (occurrence: CA)
  Receive Date: 20130619
  Receipt Date: 20130619
  Transmission Date: 20140414
  Serious: Yes (Hospitalization)
  Sender: FDA-Public Use
  Company Number: CA-JNJFOC-20130605932

PATIENT
  Age: 80 Year
  Sex: Male

DRUGS (1)
  1. REGULAR STRENGTH TYLENOL [Suspect]
     Indication: ANALGESIC THERAPY
     Dosage: TWO OR THREE TABLETS, ONCE OR TWICE DAILY
     Route: 048

REACTIONS (1)
  - Rectal haemorrhage [Unknown]
